FAERS Safety Report 9117369 (Version 1)
Quarter: 2013Q1

REPORT INFORMATION
  Report Type: Spontaneous
  Country: US (occurrence: US)
  Receive Date: 20130208
  Receipt Date: 20130208
  Transmission Date: 20140127
  Serious: No
  Sender: FDA-Public Use
  Company Number: US-BAYER-2013-015834

PATIENT
  Sex: Female
  Weight: 104 kg

DRUGS (6)
  1. ALEVE CAPLET/TABLET,MIDOL EXTENDED RELIEF CAPLET [Suspect]
     Dosage: 2 DF, BID
     Route: 048
     Dates: end: 20130127
  2. TEGRETOL [Concomitant]
  3. KLONOPIN [Concomitant]
  4. PROPANOL [Concomitant]
  5. LEXAPRO [Concomitant]
  6. HYDROCHLOROTHIAZIDE [Concomitant]

REACTIONS (1)
  - Constipation [Recovered/Resolved]
